FAERS Safety Report 21992941 (Version 1)
Quarter: 2023Q1

REPORT INFORMATION
  Report Type: Spontaneous
  Country: US (occurrence: US)
  Receive Date: 20230215
  Receipt Date: 20230215
  Transmission Date: 20230417
  Serious: No
  Sender: FDA-Public Use
  Company Number: US-PERRIGO-22US005863

PATIENT
  Age: 74 Year
  Sex: Female
  Weight: 50.79 kg

DRUGS (4)
  1. OMEPRAZOLE [Suspect]
     Active Substance: OMEPRAZOLE
     Indication: Dyspepsia
     Dosage: 20 MG, QAM
     Route: 048
     Dates: start: 20220414, end: 20220418
  2. TESTOSTERONE [Concomitant]
     Active Substance: TESTOSTERONE
     Indication: Blood calcium
     Dosage: .5 MG
     Route: 065
     Dates: start: 2017
  3. TUMS [Concomitant]
     Active Substance: CALCIUM CARBONATE
     Indication: Dyspepsia
  4. Backing soda [Concomitant]
     Indication: Dyspepsia

REACTIONS (3)
  - Condition aggravated [Recovering/Resolving]
  - Flatulence [Recovering/Resolving]
  - Eructation [Recovering/Resolving]

NARRATIVE: CASE EVENT DATE: 20220415
